FAERS Safety Report 10944812 (Version 1)
Quarter: 2015Q1

REPORT INFORMATION
  Report Type: Spontaneous
  Country: CO (occurrence: CO)
  Receive Date: 20150323
  Receipt Date: 20150323
  Transmission Date: 20150721
  Serious: Yes (Hospitalization)
  Sender: FDA-Public Use
  Company Number: CO-JNJFOC-20150308662

PATIENT
  Sex: Male
  Weight: 87 kg

DRUGS (1)
  1. INVEGA SUSTENNA [Suspect]
     Active Substance: PALIPERIDONE PALMITATE
     Indication: SCHIZOPHRENIA
     Route: 030
     Dates: start: 20150205

REACTIONS (3)
  - Crying [Unknown]
  - Moaning [Unknown]
  - Restlessness [Unknown]

NARRATIVE: CASE EVENT DATE: 20150308
